FAERS Safety Report 18355318 (Version 2)
Quarter: 2020Q4

REPORT INFORMATION
  Report Type: Spontaneous
  Country: US (occurrence: US)
  Receive Date: 20201007
  Receipt Date: 20201211
  Transmission Date: 20210114
  Serious: No
  Sender: FDA-Public Use
  Company Number: US-VERTEX PHARMACEUTICALS-2020-000675

PATIENT
  Age: 20 Year
  Sex: Female
  Weight: 64 kg

DRUGS (5)
  1. TRIKAFTA [Suspect]
     Active Substance: ELEXACAFTOR\IVACAFTOR\TEZACAFTOR
     Indication: CYSTIC FIBROSIS
     Dosage: 2ORANGE TABS (100MG ELEXACAFTOR/50MG TEZACAFTOR/75MG IVACAFTOR)AM;1BLUE TAB(150MG IVACAFTOR)PM
     Route: 048
     Dates: start: 20191212
  2. PULMOZYME [Concomitant]
     Active Substance: DORNASE ALFA
     Dosage: UNK
     Route: 048
  3. ZENPEP [Concomitant]
     Active Substance: PANCRELIPASE AMYLASE\PANCRELIPASE LIPASE\PANCRELIPASE PROTEASE
     Dosage: 10-32-42K CAPSULE
  4. ZOLOFT [Concomitant]
     Active Substance: SERTRALINE HYDROCHLORIDE
     Dosage: 25 MG TABLET
  5. GIANVI [Concomitant]
     Active Substance: DROSPIRENONE\ETHINYL ESTRADIOL
     Dosage: 0.02-3(28) TABLET

REACTIONS (4)
  - Rash [Unknown]
  - Pulmonary pain [Recovered/Resolved]
  - Productive cough [Unknown]
  - Nasopharyngitis [Unknown]

NARRATIVE: CASE EVENT DATE: 201912
